FAERS Safety Report 7965818-7 (Version None)
Quarter: 2011Q4

REPORT INFORMATION
  Report Type: 
  Country: None (occurrence: None)
  Receive Date: 20111208
  Receipt Date: 20111205
  Transmission Date: 20120403
  Serious: Yes (Hospitalization, Other)
  Sender: FDA-Public Use
  Company Number: US-PFIZER INC-2011296870

PATIENT
  Sex: Female
  Weight: 60 kg

DRUGS (4)
  1. SOTALOL [Concomitant]
     Indication: CARDIAC DISORDER
     Dosage: 80 MG, 2X/DAY
  2. LIPITOR [Suspect]
     Indication: CARDIAC FAILURE CONGESTIVE
     Dosage: 40 MG, 1X/DAY
     Route: 048
     Dates: start: 20020101
  3. LIPITOR [Suspect]
     Dosage: UNK
     Route: 048
  4. LISINOPRIL [Concomitant]
     Indication: HYPERTENSION
     Dosage: 10 MG, UNK

REACTIONS (4)
  - COMA [None]
  - URINARY TRACT INFECTION [None]
  - TOXICITY TO VARIOUS AGENTS [None]
  - ATRIAL FIBRILLATION [None]
